FAERS Safety Report 7257065-1 (Version None)
Quarter: 2011Q1

REPORT INFORMATION
  Report Type: 
  Country: None (occurrence: None)
  Receive Date: 20110129
  Receipt Date: 20100628
  Transmission Date: 20110831
  Serious: No
  Sender: FDA-Public Use
  Company Number: US-ABBOTT-10P-163-0654203-00

PATIENT
  Age: 68 Year
  Sex: Female

DRUGS (4)
  1. VITAMIN D [Concomitant]
     Indication: OSTEOPOROSIS
  2. FOSAMAX [Concomitant]
     Indication: OSTEOPOROSIS
  3. ESTROGENIC SUBSTANCE [Concomitant]
     Indication: HORMONE REPLACEMENT THERAPY
  4. HUMIRA [Suspect]
     Indication: PSORIASIS
     Dates: start: 20100526

REACTIONS (2)
  - RASH [None]
  - PSORIASIS [None]
